FAERS Safety Report 7822160-2 (Version None)
Quarter: 2011Q4

REPORT INFORMATION
  Report Type: 
  Country: None (occurrence: None)
  Receive Date: 20111018
  Receipt Date: 20110613
  Transmission Date: 20120403
  Serious: No
  Sender: FDA-Public Use
  Company Number: US-ASTRAZENECA-2011SE05703

PATIENT
  Age: 84 Year
  Sex: Male

DRUGS (3)
  1. SYMBICORT [Suspect]
     Dosage: ONE PUFF DAILY
     Route: 055
  2. SYMBICORT [Suspect]
     Dosage: 160/ 4.5 DAILY
     Route: 055
  3. SYMBICORT [Suspect]
     Dosage: TWO PUFF DAILY
     Route: 055

REACTIONS (5)
  - OXYGEN SUPPLEMENTATION [None]
  - DYSPNOEA [None]
  - CHRONIC OBSTRUCTIVE PULMONARY DISEASE [None]
  - PNEUMONIA [None]
  - INCORRECT DOSE ADMINISTERED [None]
